FAERS Safety Report 14356849 (Version 1)
Quarter: 2018Q1

REPORT INFORMATION
  Report Type: Spontaneous
  Country: JP (occurrence: JP)
  Receive Date: 20180105
  Receipt Date: 20180105
  Transmission Date: 20180509
  Serious: Yes (Hospitalization)
  Sender: FDA-Public Use
  Company Number: JP-TEVA-2017-JP-842266

PATIENT
  Age: 71 Year
  Sex: Male

DRUGS (7)
  1. PREDNISOLONE. [Suspect]
     Active Substance: PREDNISOLONE
     Dosage: 35 MILLIGRAM DAILY;
     Route: 048
     Dates: start: 201305
  2. PREDNISOLONE. [Suspect]
     Active Substance: PREDNISOLONE
     Indication: ACUTE FEBRILE NEUTROPHILIC DERMATOSIS
     Dosage: 40 MILLIGRAM DAILY;
     Route: 048
     Dates: start: 201207
  3. PREDNISOLONE. [Suspect]
     Active Substance: PREDNISOLONE
     Dosage: 20MG TO 25MG/DAY
     Route: 048
     Dates: start: 201306
  4. PREDNISOLONE. [Suspect]
     Active Substance: PREDNISOLONE
     Dosage: 10MG TO 25MG
     Route: 048
     Dates: start: 201208
  5. PREDNISOLONE. [Suspect]
     Active Substance: PREDNISOLONE
     Dosage: 35 MILLIGRAM DAILY;
     Route: 048
     Dates: start: 201306
  6. PREDNISOLONE. [Suspect]
     Active Substance: PREDNISOLONE
     Dosage: 40 MILLIGRAM DAILY;
     Route: 048
     Dates: start: 20130623
  7. PREDNISOLONE. [Suspect]
     Active Substance: PREDNISOLONE
     Dosage: 70 MILLIGRAM DAILY;
     Route: 048
     Dates: start: 20130626

REACTIONS (2)
  - Mycobacterium avium complex infection [Recovering/Resolving]
  - Lung infection [Recovering/Resolving]
